FAERS Safety Report 6617277-4 (Version None)
Quarter: 2010Q1

REPORT INFORMATION
  Report Type: 
  Country: None (occurrence: None)
  Receive Date: 20100307
  Receipt Date: 20090720
  Transmission Date: 20100710
  Serious: No
  Sender: FDA-Public Use
  Company Number: US-BAYER-200921369NA

PATIENT
  Age: 61 Year
  Sex: Female
  Weight: 67 kg

DRUGS (8)
  1. NEXAVAR [Suspect]
     Indication: HEPATIC NEOPLASM MALIGNANT
     Dosage: TOTAL DAILY DOSE: 800 MG  UNIT DOSE: 200 MG
     Route: 048
     Dates: start: 20090513
  2. AVASTIN [Concomitant]
  3. FUROSEMIDE [Concomitant]
  4. BENTYL [Concomitant]
  5. SYNTHROID [Concomitant]
  6. ATENOLOL [Concomitant]
     Indication: HYPERTENSION
  7. MYLICON [Concomitant]
     Dosage: AS USED: 40/0.6 ML
  8. CARAFATE [Concomitant]
     Dosage: 1 GM/ 10ML

REACTIONS (11)
  - ABDOMINAL PAIN UPPER [None]
  - ARTHRALGIA [None]
  - BLOOD PRESSURE INCREASED [None]
  - INCREASED TENDENCY TO BRUISE [None]
  - JOINT SWELLING [None]
  - MUSCULAR WEAKNESS [None]
  - NAUSEA [None]
  - PAIN IN EXTREMITY [None]
  - PAIN OF SKIN [None]
  - PLANTAR ERYTHEMA [None]
  - THROMBOSIS [None]
